FAERS Safety Report 10495312 (Version 1)
Quarter: 2014Q3

REPORT INFORMATION
  Report Type: Spontaneous
  Country: US (occurrence: None)
  Receive Date: 20140930
  Receipt Date: 20140930
  Transmission Date: 20150326
  Serious: Yes (Other)
  Sender: FDA-Public Use
  Company Number: 2012SA081701

PATIENT
  Age: 60 Year
  Sex: Female

DRUGS (8)
  1. LOPRESSOR [Concomitant]
     Active Substance: METOPROLOL TARTRATE
  2. LANTUS [Concomitant]
     Active Substance: INSULIN GLARGINE
     Indication: TYPE 2 DIABETES MELLITUS
     Route: 058
     Dates: start: 20121012
  3. LISINOPRIL. [Concomitant]
     Active Substance: LISINOPRIL
  4. SOLOSTAR [Concomitant]
     Active Substance: DEVICE
  5. AVAPRO [Concomitant]
     Active Substance: IRBESARTAN
  6. NORVASC [Concomitant]
     Active Substance: AMLODIPINE BESYLATE
  7. APIDRA [Suspect]
     Active Substance: INSULIN GLULISINE
     Indication: TYPE 2 DIABETES MELLITUS
     Route: 058
     Dates: start: 20121026
  8. QUINAPRIL [Concomitant]
     Active Substance: QUINAPRIL\QUINAPRIL HYDROCHLORIDE

REACTIONS (15)
  - Rash erythematous [None]
  - Diarrhoea [None]
  - Weight increased [None]
  - Intermittent claudication [None]
  - Dyspnoea [None]
  - Malaise [None]
  - Swelling face [None]
  - Fluid retention [None]
  - Blood glucose increased [None]
  - Diabetes mellitus [None]
  - Anaphylactic reaction [None]
  - Localised infection [None]
  - Product substitution issue [None]
  - Drug intolerance [None]
  - Arthralgia [None]

NARRATIVE: CASE EVENT DATE: 201210
